FAERS Safety Report 9957765 (Version 1)
Quarter: 2014Q1

REPORT INFORMATION
  Report Type: Report from Study
  Country: US (occurrence: US)
  Receive Date: 20140304
  Receipt Date: 20140304
  Transmission Date: 20141002
  Serious: No
  Sender: FDA-Public Use
  Company Number: US-ABBVIE-13P-163-1092064-00

PATIENT
  Age: 11 Year
  Sex: Female
  Weight: 40.41 kg

DRUGS (3)
  1. HUMIRA [Suspect]
     Indication: CROHN^S DISEASE
     Route: 058
     Dates: start: 201304
  2. METHOTREXATE [Concomitant]
     Indication: CROHN^S DISEASE
  3. PULMICORT [Concomitant]
     Indication: ASTHMA

REACTIONS (2)
  - Injection site urticaria [Recovered/Resolved with Sequelae]
  - Injection site bruising [Recovered/Resolved]
